FAERS Safety Report 14589612 (Version 1)
Quarter: 2018Q1

REPORT INFORMATION
  Report Type: Report from Study
  Country: None (occurrence: GB)
  Receive Date: 20180302
  Receipt Date: 20180302
  Transmission Date: 20180509
  Serious: Yes (Death, Other)
  Sender: FDA-Public Use
  Company Number: GB-ABBVIE-13P-167-1105915-00

PATIENT
  Age: 72 Year
  Sex: Male

DRUGS (1)
  1. HUMIRA [Suspect]
     Active Substance: ADALIMUMAB
     Indication: RHEUMATOID ARTHRITIS
     Route: 058
     Dates: start: 20051129, end: 20120410

REACTIONS (4)
  - Metastatic malignant melanoma [Unknown]
  - Colitis ulcerative [Fatal]
  - Metastatic neoplasm [Fatal]
  - Lung cancer metastatic [Unknown]

NARRATIVE: CASE EVENT DATE: 20121015
